FAERS Safety Report 4694809-7 (Version None)
Quarter: 2005Q2

REPORT INFORMATION
  Report Type: 
  Country: None (occurrence: None)
  Receive Date: 20050617
  Receipt Date: 20050607
  Transmission Date: 20051028
  Serious: Yes (Hospitalization)
  Sender: FDA-Public Use
  Company Number: 232401K05USA

PATIENT
  Age: 63 Year
  Sex: Female

DRUGS (1)
  1. REBIF [Suspect]
     Indication: MULTIPLE SCLEROSIS

REACTIONS (3)
  - INJECTION SITE INFECTION [None]
  - LUNG DISORDER [None]
  - STAPHYLOCOCCAL INFECTION [None]
